FAERS Safety Report 5605791-X (Version None)
Quarter: 2008Q1

REPORT INFORMATION
  Report Type: 
  Country: None (occurrence: None)
  Receive Date: 20080129
  Receipt Date: 20080123
  Transmission Date: 20080703
  Serious: Yes (Life-Threatening, Disabling)
  Sender: FDA-Public Use
  Company Number: US-ROCHE-533770

PATIENT
  Age: 66 Year
  Sex: Female
  Weight: 113.9 kg

DRUGS (1)
  1. BONIVA [Suspect]
     Indication: OSTEOPENIA
     Dosage: INDICATION REPORTED AS OSTEOPENIA OR OSTEOPOROSIS.
     Route: 048
     Dates: start: 20071101, end: 20071101

REACTIONS (3)
  - AUTOIMMUNE HEPATITIS [None]
  - HEPATIC CIRRHOSIS [None]
  - HEPATOTOXICITY [None]
